FAERS Safety Report 5705266-3 (Version None)
Quarter: 2008Q2

REPORT INFORMATION
  Report Type: 
  Country: None (occurrence: None)
  Receive Date: 20080411
  Receipt Date: 20080406
  Transmission Date: 20081010
  Serious: Yes (Other)
  Sender: FDA-Public Use
  Company Number: CHPA2008US06119

PATIENT
  Age: 30 Year
  Sex: Male

DRUGS (1)
  1. MAALOX MS TOTAL STOMACH RELIEF (NCH)(BISMUTH SUBSALICYLATE) SUSPENSION [Suspect]
     Indication: DYSPEPSIA
     Dosage: 6 TSP, Q6H, ORAL
     Route: 048
     Dates: start: 20080328, end: 20080406

REACTIONS (2)
  - DEAFNESS [None]
  - TINNITUS [None]
